FAERS Safety Report 7201341-5 (Version None)
Quarter: 2010Q4

REPORT INFORMATION
  Report Type: 
  Country: None (occurrence: None)
  Receive Date: 20101229
  Receipt Date: 20101220
  Transmission Date: 20110411
  Serious: Yes (Hospitalization, Other)
  Sender: FDA-Public Use
  Company Number: NL-ABBOTT-10P-114-0660501-00

PATIENT
  Sex: Male
  Weight: 68 kg

DRUGS (6)
  1. LUCRIN DEPOT 11.25 MG [Suspect]
     Indication: PROSTATE CANCER
     Route: 058
     Dates: start: 20060901, end: 20100201
  2. LUCRIN DEPOT 30 MG [Suspect]
     Indication: PROSTATE CANCER
     Route: 058
     Dates: start: 20100201
  3. CALCI CHEW [Concomitant]
     Indication: OSTEOPOROSIS PROPHYLAXIS
     Route: 048
     Dates: start: 20090801
  4. OMEPRAZOLE [Concomitant]
     Indication: PROPHYLAXIS
     Route: 048
     Dates: start: 20090101
  5. OMEPRAZOLE [Concomitant]
     Indication: GASTRIC DISORDER
  6. PREDNISOLONE [Concomitant]
     Indication: INFECTION PROPHYLAXIS
     Dates: start: 20090601, end: 20100701

REACTIONS (6)
  - ARRHYTHMIA [None]
  - HOT FLUSH [None]
  - METASTASES TO BONE [None]
  - PULMONARY EMBOLISM [None]
  - TUMOUR COMPRESSION [None]
  - URINARY TRACT OBSTRUCTION [None]
